APPROVED DRUG PRODUCT: ACYCLOVIR
Active Ingredient: ACYCLOVIR
Strength: 200MG
Dosage Form/Route: CAPSULE;ORAL
Application: A075101 | Product #001
Applicant: WATSON LABORATORIES INC
Approved: Apr 15, 1998 | RLD: No | RS: No | Type: DISCN